FAERS Safety Report 5479344-0 (Version None)
Quarter: 2007Q4

REPORT INFORMATION
  Report Type: 
  Country: None (occurrence: None)
  Receive Date: 20071008
  Receipt Date: 20070926
  Transmission Date: 20080405
  Serious: Yes (Other)
  Sender: FDA-Public Use
  Company Number: AU-ASTRAZENECA-2007AP05244

PATIENT
  Sex: Female

DRUGS (3)
  1. SYMBICORT [Suspect]
     Indication: ASTHMA
     Dosage: 200/6 UG
     Route: 055
  2. SYMBICORT [Suspect]
     Dosage: REPLACEMENT PRODUCT
     Route: 055
  3. VENTOLIN [Concomitant]
     Indication: ASTHMA
     Dosage: ONE TO TWO DOSES PRN
     Route: 055

REACTIONS (2)
  - DEVICE INEFFECTIVE [None]
  - DYSPNOEA [None]
